FAERS Safety Report 21383043 (Version 1)
Quarter: 2022Q3

REPORT INFORMATION
  Report Type: Spontaneous
  Country: US (occurrence: US)
  Receive Date: 20220927
  Receipt Date: 20220927
  Transmission Date: 20221027
  Serious: No
  Sender: FDA-Public Use
  Company Number: US-SA-SAC20220922000244

PATIENT
  Sex: Female
  Weight: 51.48 kg

DRUGS (14)
  1. DUPIXENT [Suspect]
     Active Substance: DUPILUMAB
     Indication: Dermatitis atopic
     Dosage: 300 MG, QOW
     Route: 058
     Dates: start: 201908
  2. MAGNESIUM [Concomitant]
     Active Substance: MAGNESIUM
  3. OMEPRAZOLE [Concomitant]
     Active Substance: OMEPRAZOLE
  4. PROPRANOLOL HYDROCHLORIDE [Concomitant]
     Active Substance: PROPRANOLOL HYDROCHLORIDE
  5. POLYETHYLENE GLYCOL 3350 [Concomitant]
     Active Substance: POLYETHYLENE GLYCOL 3350
  6. NITROFURANTOIN [Concomitant]
     Active Substance: NITROFURANTOIN
  7. DOXYCYCLINE HYCLATE [Concomitant]
     Active Substance: DOXYCYCLINE HYCLATE
  8. GABAPENTIN [Concomitant]
     Active Substance: GABAPENTIN
  9. MONTELUKAST SODIUM [Concomitant]
     Active Substance: MONTELUKAST SODIUM
  10. CLOPIDOGREL [Concomitant]
     Active Substance: CLOPIDOGREL BISULFATE
  11. CEPHALEXIN [Concomitant]
     Active Substance: CEPHALEXIN
  12. TRAZODONE HCL [Concomitant]
     Active Substance: TRAZODONE HYDROCHLORIDE
  13. HYDROMORPHONE HCL [Concomitant]
     Active Substance: HYDROMORPHONE HYDROCHLORIDE
  14. DIAZEPAM [Concomitant]
     Active Substance: DIAZEPAM

REACTIONS (4)
  - Pruritus [Unknown]
  - Rash [Unknown]
  - Therapeutic response shortened [Unknown]
  - Injection site swelling [Unknown]
